FAERS Safety Report 17196955 (Version 3)
Quarter: 2021Q2

REPORT INFORMATION
  Report Type: Spontaneous
  Country: US (occurrence: US)
  Receive Date: 20191224
  Receipt Date: 20210423
  Transmission Date: 20210716
  Serious: Yes (Other)
  Sender: FDA-Public Use
  Company Number: US-SA-2019SA348665

PATIENT
  Age: 55 Year
  Sex: Female

DRUGS (1)
  1. DUPIXENT [Suspect]
     Active Substance: DUPILUMAB
     Indication: ASTHMA
     Dosage: 300 MG, QOW
     Route: 058
     Dates: start: 20191210

REACTIONS (7)
  - Product use issue [Unknown]
  - Product dose omission in error [Unknown]
  - Product dose omission issue [Not Recovered/Not Resolved]
  - Asthma [Not Recovered/Not Resolved]
  - Spinal operation [Not Recovered/Not Resolved]
  - Memory impairment [Unknown]
  - Influenza [Recovering/Resolving]

NARRATIVE: CASE EVENT DATE: 20191210
